FAERS Safety Report 6730312-8 (Version None)
Quarter: 2010Q2

REPORT INFORMATION
  Report Type: 
  Country: None (occurrence: None)
  Receive Date: 20100518
  Receipt Date: 20100510
  Transmission Date: 20101027
  Serious: Yes (Other)
  Sender: FDA-Public Use
  Company Number: JP-ROCHE-702592

PATIENT
  Age: 76 Year
  Sex: Female

DRUGS (2)
  1. AVASTIN [Suspect]
     Route: 031
  2. INSULIN [Concomitant]

REACTIONS (1)
  - RETINAL ISCHAEMIA [None]
